FAERS Safety Report 5163484-X (Version None)
Quarter: 2006Q4

REPORT INFORMATION
  Report Type: 
  Country: None (occurrence: None)
  Receive Date: 20061204
  Receipt Date: 20061121
  Transmission Date: 20070319
  Serious: Yes (Other)
  Sender: FDA-Public Use
  Company Number: CA-JNJFOC-20060204875

PATIENT
  Sex: Female
  Weight: 62 kg

DRUGS (9)
  1. INFLIXIMAB [Suspect]
     Indication: HEPATITIS C
     Route: 042
     Dates: start: 20051130, end: 20051130
  2. INTERFERON ALFA 2B [Suspect]
     Indication: HEPATITIS C
     Dosage: 10 WEEKLY INJECTIONS.
     Route: 058
     Dates: start: 20051207, end: 20060208
  3. RIBAVIRIN [Concomitant]
     Indication: HEPATITIS C
     Route: 048
     Dates: start: 20051207, end: 20060215
  4. TRAZODONE HCL [Concomitant]
     Indication: INSOMNIA
     Route: 048
  5. TRAZODONE HCL [Concomitant]
     Indication: DEPRESSION
     Route: 048
  6. IBUPROFEN [Concomitant]
     Route: 048
  7. TYLENOL ES [Concomitant]
     Indication: HEADACHE
  8. GRAVOL TAB [Concomitant]
     Indication: NAUSEA
     Route: 048
  9. ROLAIDS [Concomitant]
     Indication: NAUSEA
     Route: 048

REACTIONS (1)
  - POLYARTHRITIS [None]
